FAERS Safety Report 7817822-7 (Version None)
Quarter: 2011Q4

REPORT INFORMATION
  Report Type: 
  Country: None (occurrence: None)
  Receive Date: 20111017
  Receipt Date: 20111014
  Transmission Date: 20120403
  Serious: Yes (Life-Threatening, Hospitalization, Other)
  Sender: FDA-Public Use
  Company Number: JP-B.I. PHARMACEUTICALS,INC./RIDGEFIELD-2011-BP-21353NB

PATIENT
  Sex: Female
  Weight: 46 kg

DRUGS (10)
  1. MUCOSTA [Concomitant]
     Indication: GASTRITIS
     Dosage: 200 MG
     Route: 048
     Dates: start: 20080101, end: 20110817
  2. PRADAXA [Suspect]
     Indication: ATRIAL FIBRILLATION
     Dosage: 220 MG
     Route: 048
     Dates: start: 20110714, end: 20110817
  3. VESICARE [Concomitant]
     Indication: POLLAKIURIA
     Dosage: 2.5 MG
     Route: 048
     Dates: start: 20080101
  4. AMLODIN OD [Concomitant]
     Indication: HYPERTENSION
     Dosage: 5 MG
     Route: 048
     Dates: start: 20060101, end: 20110817
  5. CELECOXIB [Concomitant]
     Indication: OSTEOPOROSIS
     Route: 048
     Dates: start: 20080101, end: 20110817
  6. CANDESARTAN CILEXETIL [Concomitant]
     Indication: HYPERTENSION
     Dosage: 8 MG
     Route: 048
     Dates: start: 20060101, end: 20110817
  7. CALCITAMIN [Concomitant]
     Indication: OSTEOPOROSIS
     Route: 048
     Dates: start: 20080101, end: 20110817
  8. OSPAIN [Concomitant]
     Indication: OSTEOPOROSIS
     Dosage: 400 MG
     Route: 048
     Dates: start: 20080101, end: 20110817
  9. SUNRYTHM [Concomitant]
     Indication: ATRIAL FIBRILLATION
     Dosage: 75 MG
     Route: 048
     Dates: start: 20110714
  10. SUNRYTHM [Concomitant]
     Dosage: 50 MG
     Route: 048
     Dates: start: 20110818

REACTIONS (5)
  - ANAEMIA [None]
  - COMPRESSION FRACTURE [None]
  - FALL [None]
  - DECREASED APPETITE [None]
  - GASTROINTESTINAL HAEMORRHAGE [None]
